FAERS Safety Report 8242941-3 (Version None)
Quarter: 2012Q1

REPORT INFORMATION
  Report Type: 
  Country: None (occurrence: None)
  Receive Date: 20120329
  Receipt Date: 20120329
  Transmission Date: 20120608
  Serious: Yes (Other)
  Sender: FDA-Public Use
  Company Number: None

PATIENT
  Sex: Male
  Weight: 100.24 kg

DRUGS (4)
  1. ENBREL [Suspect]
     Indication: PSORIATIC ARTHROPATHY
     Dates: start: 20060701, end: 20120401
  2. HUMIRA [Concomitant]
  3. IMURAN [Concomitant]
  4. METHOTREXATE [Concomitant]

REACTIONS (2)
  - DEFORMITY [None]
  - BASAL CELL CARCINOMA [None]
